FAERS Safety Report 21350119 (Version 2)
Quarter: 2022Q4

REPORT INFORMATION
  Report Type: Report from Study
  Country: CA (occurrence: CA)
  Receive Date: 20220919
  Receipt Date: 20221017
  Transmission Date: 20230112
  Serious: Yes (Other)
  Sender: FDA-Public Use
  Company Number: CA-BRISTOL-MYERS SQUIBB COMPANY-2022-107214

PATIENT
  Age: 79 Year
  Sex: Male

DRUGS (5)
  1. VIDAZA [Suspect]
     Active Substance: AZACITIDINE
     Indication: Product used for unknown indication
     Route: 058
  2. VENCLEXTA [Concomitant]
     Active Substance: VENETOCLAX
     Indication: Prostate cancer
     Dosage: DURATION :3 MONTHS
     Route: 048
  3. VENCLEXTA [Concomitant]
     Active Substance: VENETOCLAX
     Dosage: DURATION:31
     Route: 048
  4. VENCLEXTA [Concomitant]
     Active Substance: VENETOCLAX
     Dosage: DURATION:59
     Route: 048
  5. FLUCONAZOLE [Concomitant]
     Active Substance: FLUCONAZOLE
     Indication: Product used for unknown indication
     Route: 065

REACTIONS (6)
  - Myelodysplastic syndrome [Not Recovered/Not Resolved]
  - Drug ineffective [Not Recovered/Not Resolved]
  - Prostate cancer [Not Recovered/Not Resolved]
  - Dyspnoea [Not Recovered/Not Resolved]
  - Haemoglobin decreased [Not Recovered/Not Resolved]
  - Myelosuppression [Not Recovered/Not Resolved]
